FAERS Safety Report 24778855 (Version 1)
Quarter: 2024Q4

REPORT INFORMATION
  Report Type: Spontaneous
  Country: HU (occurrence: HU)
  Receive Date: 20241226
  Receipt Date: 20241226
  Transmission Date: 20250114
  Serious: Yes (Hospitalization, Other)
  Sender: TEVA
  Company Number: HU-TEVA-VS-3278220

PATIENT
  Age: 51 Year
  Sex: Female

DRUGS (5)
  1. ETOPOSIDE [Suspect]
     Active Substance: ETOPOSIDE
     Indication: Cutaneous T-cell lymphoma
     Dosage: BV-CHEP THERAPY
     Route: 065
     Dates: start: 202202
  2. CYCLOPHOSPHAMIDE [Suspect]
     Active Substance: CYCLOPHOSPHAMIDE
     Indication: Cutaneous T-cell lymphoma
     Dosage: BV-CHEP THERAPY
     Route: 065
     Dates: start: 202202
  3. DOXORUBICIN [Suspect]
     Active Substance: DOXORUBICIN
     Indication: Cutaneous T-cell lymphoma
     Dosage: BV-CHEP THERAPY
     Route: 065
     Dates: start: 202202
  4. BRENTUXIMAB VEDOTIN [Suspect]
     Active Substance: BRENTUXIMAB VEDOTIN
     Indication: Cutaneous T-cell lymphoma
     Dosage: BV-CHEP THERAPY
     Route: 065
     Dates: start: 202202
  5. PREDNISOLONE [Suspect]
     Active Substance: PREDNISOLONE
     Indication: Cutaneous T-cell lymphoma
     Dosage: BV-CHEP THERAPY
     Route: 065
     Dates: start: 202202

REACTIONS (5)
  - Anaemia [Unknown]
  - Bacterial infection [Unknown]
  - Sepsis [Unknown]
  - Cytomegalovirus infection [Unknown]
  - Clostridium difficile infection [Unknown]

NARRATIVE: CASE EVENT DATE: 20220601
